FAERS Safety Report 24739891 (Version 3)
Quarter: 2025Q2

REPORT INFORMATION
  Report Type: Spontaneous
  Country: US (occurrence: US)
  Receive Date: 20241216
  Receipt Date: 20250428
  Transmission Date: 20250716
  Serious: No
  Sender: LUNDBECK
  Company Number: US-LUNDBECK-DKLU4006660

PATIENT
  Age: 84 Year
  Sex: Male

DRUGS (5)
  1. NORTHERA [Suspect]
     Active Substance: DROXIDOPA
     Indication: Parkinson^s disease
     Dosage: 100 MILLIGRAM
     Route: 048
     Dates: start: 202208
  2. NORTHERA [Suspect]
     Active Substance: DROXIDOPA
     Indication: Hypotension
     Dosage: 200 MILLIGRAM
     Route: 065
  3. NORTHERA [Suspect]
     Active Substance: DROXIDOPA
     Indication: Loss of consciousness
     Dosage: 300 MILLIGRAM
     Route: 065
     Dates: start: 20241106
  4. MIDODRINE [Concomitant]
     Active Substance: MIDODRINE
     Indication: Product used for unknown indication
  5. CARBIDOPA\LEVODOPA [Concomitant]
     Active Substance: CARBIDOPA\LEVODOPA
     Indication: Product used for unknown indication

REACTIONS (2)
  - Lethargy [Unknown]
  - Somnolence [Unknown]

NARRATIVE: CASE EVENT DATE: 20241106
